FAERS Safety Report 15820931 (Version 6)
Quarter: 2025Q4

REPORT INFORMATION
  Report Type: Spontaneous
  Country: US (occurrence: US)
  Receive Date: 20190114
  Receipt Date: 20251010
  Transmission Date: 20260118
  Serious: No
  Sender: BIOGEN
  Company Number: US-BIOGEN-2019BI00679923

PATIENT
  Sex: Female

DRUGS (2)
  1. TYSABRI [Suspect]
     Active Substance: NATALIZUMAB
     Indication: Multiple sclerosis
     Dosage: INFUSED OVER 1 HOUR
     Route: 050
     Dates: start: 20150728
  2. TYSABRI [Suspect]
     Active Substance: NATALIZUMAB
     Dosage: INFUSED OVER 1 HOUR
     Route: 050

REACTIONS (8)
  - Prescribed underdose [Not Recovered/Not Resolved]
  - Scar [Not Recovered/Not Resolved]
  - Bone contusion [Recovered/Resolved]
  - Multiple sclerosis [Recovered/Resolved]
  - Hyperkeratosis [Recovered/Resolved]
  - Contusion [Recovered/Resolved]
  - Device dislocation [Recovered/Resolved]
  - Infusion site bruising [Not Recovered/Not Resolved]
